FAERS Safety Report 20587270 (Version 2)
Quarter: 2022Q2

REPORT INFORMATION
  Report Type: Other
  Country: CA (occurrence: CA)
  Receive Date: 20220314
  Receipt Date: 20220420
  Transmission Date: 20220721
  Serious: Yes (Other)
  Sender: FDA-Public Use
  Company Number: None

PATIENT
  Age: 57 Year
  Sex: Male

DRUGS (1)
  1. CISPLATIN [Suspect]
     Active Substance: CISPLATIN
     Indication: Squamous cell carcinoma of head and neck
     Dosage: 1 EVERY 21 DAYS
     Route: 042

REACTIONS (3)
  - Malignant neoplasm progression [Unknown]
  - Metastatic squamous cell carcinoma [Unknown]
  - Drug ineffective [Unknown]
